FAERS Safety Report 16313925 (Version 1)
Quarter: 2019Q2

REPORT INFORMATION
  Report Type: Spontaneous
  Country: US (occurrence: US)
  Receive Date: 20190514
  Receipt Date: 20190514
  Transmission Date: 20190711
  Serious: Yes (Disabling)
  Sender: FDA-Public Use
  Company Number: None

PATIENT
  Age: 27 Year
  Sex: Male
  Weight: 101.25 kg

DRUGS (4)
  1. HYDROLYZED COLLAGEN TYPE I [Concomitant]
  2. MUCOPOLYSACCHARIDES [Concomitant]
     Active Substance: GLYCOSAMINOGLYCANS
  3. VITAMIN C, CALCIUM, IRON, VITAMIN D3, VITAMIN E, THIAMIN, RIBOFLAVIN, NIACINAMIDE, VITAMIN B6, FOLIC ACID, IODINE, ZINC, COPPER, DOCUSATE SODIUM [Concomitant]
     Active Substance: ALPHA-TOCOPHEROL ACETATE\ASCORBIC ACID\CALCIUM CITRATE\CUPRIC OXIDE\DOCUSATE SODIUM\FOLIC ACID\IRON\NIACINAMIDE\POTASSIUM IODIDE\PYRIDOXINE HYDROCHLORIDE\RIBOFLAVIN\THIAMINE\VITAMIN D\ZINC OXIDE
  4. CIPROFLOXACIN. [Suspect]
     Active Substance: CIPROFLOXACIN
     Indication: EPIDIDYMITIS
     Dosage: ?          QUANTITY:1 TABLET(S);?
     Route: 048
     Dates: start: 20190213, end: 20190222

REACTIONS (15)
  - Dizziness [None]
  - Dysgeusia [None]
  - Nephrolithiasis [None]
  - Skin irritation [None]
  - Arthralgia [None]
  - Sensory disturbance [None]
  - Tongue coated [None]
  - Tinnitus [None]
  - Collagen disorder [None]
  - Chondropathy [None]
  - Raynaud^s phenomenon [None]
  - Ear congestion [None]
  - Joint noise [None]
  - Medial tibial stress syndrome [None]
  - Pain in extremity [None]

NARRATIVE: CASE EVENT DATE: 20190226
